FAERS Safety Report 6018493-5 (Version None)
Quarter: 2008Q4

REPORT INFORMATION
  Report Type: 
  Country: None (occurrence: None)
  Receive Date: 20081223
  Receipt Date: 20081215
  Transmission Date: 20090506
  Serious: Yes (Death)
  Sender: FDA-Public Use
  Company Number: US-PFIZER INC-2008154160

PATIENT
  Age: 18 Year
  Sex: Female

DRUGS (6)
  1. ALPRAZOLAM [Suspect]
     Route: 048
  2. PRAZOSIN HCL [Suspect]
     Route: 048
  3. SERTRALINE HCL [Suspect]
     Route: 048
  4. ETHANOL [Suspect]
     Route: 048
  5. LAMOTRIGINE [Suspect]
     Route: 048
  6. QUETIAPINE [Suspect]
     Route: 048

REACTIONS (1)
  - COMPLETED SUICIDE [None]
